FAERS Safety Report 15820119 (Version 1)
Quarter: 2019Q1

REPORT INFORMATION
  Report Type: Spontaneous
  Country: US (occurrence: US)
  Receive Date: 20190114
  Receipt Date: 20190114
  Transmission Date: 20190417
  Serious: No
  Sender: FDA-Public Use
  Company Number: US-BAYER-2019-000740

PATIENT
  Age: 28 Year
  Sex: Male

DRUGS (2)
  1. NAPROXEN SODIUM ({= 220 MG) [Suspect]
     Active Substance: NAPROXEN SODIUM
  2. PARACETAMOL [Concomitant]
     Active Substance: ACETAMINOPHEN
     Indication: ARTHRALGIA

REACTIONS (1)
  - Epigastric discomfort [Unknown]
